FAERS Safety Report 7088816-7 (Version None)
Quarter: 2010Q4

REPORT INFORMATION
  Report Type: 
  Country: None (occurrence: None)
  Receive Date: 20101108
  Receipt Date: 20101026
  Transmission Date: 20110411
  Serious: Yes (Hospitalization)
  Sender: FDA-Public Use
  Company Number: PHHY2010FR73422

PATIENT
  Sex: Male

DRUGS (12)
  1. FORADIL [Suspect]
     Dosage: 1 DF, BID
  2. VOLTAREN [Suspect]
     Dosage: 1 DF, QD
     Route: 048
  3. STAGID [Suspect]
     Dosage: 700 MG, TID
     Route: 048
  4. NOVONORM [Suspect]
     Dosage: 1 MG, TID
     Route: 048
  5. TANGANIL [Suspect]
     Dosage: 500 MG, BID
     Route: 048
  6. VASTAREL [Suspect]
     Dosage: 35 MG, BID
     Route: 048
  7. EUROBIOL [Suspect]
     Dosage: 2 DF, TID
     Route: 048
  8. ELISOR [Suspect]
     Dosage: 40 MG, QD
     Route: 048
  9. TENORMIN [Suspect]
     Dosage: 100 MG, BID
  10. PERINDOPRIL ERBUMINE [Suspect]
     Dosage: 2.5 MG, QD
  11. KARDEGIC [Suspect]
     Dosage: 160 MG, QD
     Route: 048
  12. STABLON [Suspect]
     Dosage: 1 DF, QD
     Route: 048

REACTIONS (12)
  - ANAEMIA HAEMOLYTIC AUTOIMMUNE [None]
  - ANAEMIA MACROCYTIC [None]
  - ANTINUCLEAR ANTIBODY POSITIVE [None]
  - BLOOD ERYTHROPOIETIN INCREASED [None]
  - COOMBS POSITIVE HAEMOLYTIC ANAEMIA [None]
  - EAR PAIN [None]
  - EPSTEIN-BARR VIRUS TEST POSITIVE [None]
  - HAEMOGLOBIN DECREASED [None]
  - LYMPHOPENIA [None]
  - OTITIS EXTERNA [None]
  - RASH [None]
  - SERUM FERRITIN INCREASED [None]
